FAERS Safety Report 7958950-5 (Version None)
Quarter: 2011Q4

REPORT INFORMATION
  Report Type: 
  Country: None (occurrence: None)
  Receive Date: 20111130
  Receipt Date: 20111118
  Transmission Date: 20120403
  Serious: Yes (Other)
  Sender: FDA-Public Use
  Company Number: ACO_28202_2011

PATIENT
  Age: 56 Year
  Sex: Female

DRUGS (5)
  1. AMPYRA [Suspect]
     Indication: GAIT DISTURBANCE
     Dosage: UNK
     Dates: start: 20110101
  2. SYNTHROID (LEVOTHYROXINE SODIUM) ONGOING [Concomitant]
  3. AVONEX (INTERFERON BETA-1A) ONGOING [Concomitant]
  4. NEURONTIN (GABAPENTIN) ONGOING [Concomitant]
  5. CLONIDINE (CLONIDINE) ONGOING [Concomitant]

REACTIONS (2)
  - LIGAMENT RUPTURE [None]
  - FALL [None]
